FAERS Safety Report 9120737 (Version 2)
Quarter: 2013Q1

REPORT INFORMATION
  Report Type: Spontaneous
  Country: US (occurrence: US)
  Receive Date: 20130226
  Receipt Date: 20130315
  Transmission Date: 20140127
  Serious: Yes (Other)
  Sender: FDA-Public Use
  Company Number: US-PFIZER INC-2013070044

PATIENT
  Age: 74 Year
  Sex: Female
  Weight: 118 kg

DRUGS (9)
  1. NEURONTIN [Suspect]
     Indication: NEUROPATHY PERIPHERAL
     Dosage: 300 MG, 3X/DAY
     Route: 048
     Dates: start: 201211
  2. NEURONTIN [Suspect]
     Dosage: 600 MG(TWO CAPSULES OF 300MG), 3X/DAY
     Route: 048
  3. NEURONTIN [Suspect]
     Dosage: 900 MG(THREE CAPSULES OF 300MG), 3X/DAY
     Route: 048
  4. NEURONTIN [Suspect]
     Dosage: UNK
     Route: 048
  5. ATENOLOL [Concomitant]
     Indication: HYPERTENSION
     Dosage: UNK
  6. HYDROCHLOROTHIAZIDE [Concomitant]
     Indication: HYPERTENSION
     Dosage: UNK
  7. TROSPIUM [Concomitant]
     Indication: BLADDER DISORDER
     Dosage: UNK
  8. SYNTHROID [Concomitant]
     Indication: HYPOTHYROIDISM
     Dosage: UNK
  9. DEXILANT [Concomitant]
     Indication: GASTROOESOPHAGEAL REFLUX DISEASE
     Dosage: UNK

REACTIONS (2)
  - Hypothyroidism [Unknown]
  - Drug ineffective [Unknown]
